FAERS Safety Report 6801055-7 (Version None)
Quarter: 2010Q2

REPORT INFORMATION
  Report Type: 
  Country: None (occurrence: None)
  Receive Date: 20100629
  Receipt Date: 20100617
  Transmission Date: 20101027
  Serious: Yes (Hospitalization, Other)
  Sender: FDA-Public Use
  Company Number: HR-ELI_LILLY_AND_COMPANY-HR201006005662

PATIENT
  Sex: Male
  Weight: 76 kg

DRUGS (6)
  1. ZYPREXA [Suspect]
     Indication: ACUTE PSYCHOSIS
     Dosage: 10 MG, 2/D
     Route: 048
     Dates: start: 20100102, end: 20100512
  2. DEPAKENE [Concomitant]
     Indication: ACUTE PSYCHOSIS
     Dosage: 500 MG, 2/D
     Route: 048
     Dates: start: 20100102, end: 20100512
  3. HALDOL [Concomitant]
     Indication: ACUTE PSYCHOSIS
     Dosage: 10 MG, DAILY (1/D)
     Route: 048
     Dates: start: 20100102, end: 20100331
  4. AKINETON [Concomitant]
     Indication: PARKINSONISM
     Dosage: 2 MG, DAILY (1/D)
     Route: 048
     Dates: start: 20100102, end: 20100312
  5. SULPIRIL [Concomitant]
     Indication: ACUTE PSYCHOSIS
     Dosage: 600 MG, UNK
  6. RANIX [Concomitant]
     Dosage: 150 MG, DAILY (1/D)

REACTIONS (5)
  - ANTISOCIAL BEHAVIOUR [None]
  - HYPERSOMNIA [None]
  - PARKINSONISM [None]
  - PERSONALITY DISORDER [None]
  - SEBORRHOEIC DERMATITIS [None]
